FAERS Safety Report 18137770 (Version 1)
Quarter: 2020Q3

REPORT INFORMATION
  Report Type: Spontaneous
  Country: IT (occurrence: IT)
  Receive Date: 20200812
  Receipt Date: 20200812
  Transmission Date: 20201103
  Serious: Yes (Death, Hospitalization)
  Sender: FDA-Public Use
  Company Number: IT-TEVA-2020-IT-1812514

PATIENT
  Age: 45 Year
  Sex: Male
  Weight: 80 kg

DRUGS (12)
  1. TIGECYCLINE. [Suspect]
     Active Substance: TIGECYCLINE
     Indication: SEPTIC SHOCK
     Dosage: 200 MILLIGRAM DAILY;
     Route: 065
  2. VASOPRESSIN. [Suspect]
     Active Substance: VASOPRESSIN
     Indication: SEPTIC SHOCK
     Dosage: VASOPRESSIN UP TO 0.02 U/KG/H
     Route: 065
  3. VANCOMYCIN [Concomitant]
     Active Substance: VANCOMYCIN
     Dosage: CONTINUOUS INFUSION OF VANCOMYCIN
     Route: 050
  4. GLUCOSE [Concomitant]
     Active Substance: DEXTROSE
     Indication: SEPTIC SHOCK
     Route: 041
  5. ALBUMIN CONCENTRATE [Suspect]
     Active Substance: ALBUMIN HUMAN
     Indication: RESUSCITATION
     Dosage: 120 G ALBUMIN CONCENTRATE (20%) ADMINISTERED 8 HOURS POSTBURN.
     Route: 041
  6. NORADRENALINE [Suspect]
     Active Substance: NOREPINEPHRINE
     Indication: SEPTIC SHOCK
     Route: 065
  7. VANCOMYCIN [Concomitant]
     Active Substance: VANCOMYCIN
     Indication: ANTIBIOTIC PROPHYLAXIS
     Dosage: VANCOMYCIN 2 G INFUSED 1?HOUR BEFORE SURGICAL ESCHAROTOMIES PERFORMED IN OPERATING ROOM.
     Route: 050
  8. MEROPENEM. [Suspect]
     Active Substance: MEROPENEM
     Indication: SEPTIC SHOCK
     Dosage: 4 GRAM DAILY;
     Route: 050
  9. COLISTIN [Suspect]
     Active Substance: COLISTIN
     Indication: SEPTIC SHOCK
     Dosage: LOADING DOSE OF 9MU
     Route: 065
  10. GENTAMICIN. [Suspect]
     Active Substance: GENTAMICIN
     Indication: SEPTIC SHOCK
     Dosage: 240 MILLIGRAM DAILY; GENTAMICIN 240 MG WAS ADMINISTERED AS A 30?MIN INTRAVENOUS INFUSION IN GLUCOSE
     Route: 041
  11. AMOXICILLIN W/CLAVULANIC ACID [Suspect]
     Active Substance: AMOXICILLIN\CLAVULANIC ACID
     Indication: ANTIBIOTIC PROPHYLAXIS
     Dosage: 8.8 GRAM DAILY; ADMINISTERED IN THE FIRST 72 HOURS FOLLOWING ICU ADMISSION.
     Route: 041
  12. COLISTIN [Suspect]
     Active Substance: COLISTIN
     Dosage: 1MU EVERY 12 HOURS/DAY FOLLOWING THE LOADING DOSE
     Route: 065

REACTIONS (1)
  - Drug ineffective [Fatal]
